FAERS Safety Report 8182506-5 (Version None)
Quarter: 2012Q1

REPORT INFORMATION
  Report Type: 
  Country: None (occurrence: None)
  Receive Date: 20120305
  Receipt Date: 20120224
  Transmission Date: 20120608
  Serious: Yes (Hospitalization)
  Sender: FDA-Public Use
  Company Number: DE-BIOGENIDEC-2012BI007246

PATIENT
  Age: 53 Year
  Sex: Male

DRUGS (1)
  1. AVONEX [Suspect]
     Indication: MULTIPLE SCLEROSIS
     Route: 030
     Dates: start: 20110301

REACTIONS (6)
  - HYPERTENSION [None]
  - MOTOR DYSFUNCTION [None]
  - ILL-DEFINED DISORDER [None]
  - MENTAL DISORDER [None]
  - MEMORY IMPAIRMENT [None]
  - PARKINSON'S DISEASE [None]
